FAERS Safety Report 11434306 (Version 1)
Quarter: 2015Q3

REPORT INFORMATION
  Report Type: Spontaneous
  Country: US (occurrence: None)
  Receive Date: 20150828
  Receipt Date: 20150828
  Transmission Date: 20151125
  Serious: Yes (Hospitalization)
  Sender: FDA-Public Use
  Company Number: None

PATIENT
  Age: 33 Year
  Sex: Female
  Weight: 63.5 kg

DRUGS (1)
  1. ATIVAN [Suspect]
     Active Substance: LORAZEPAM
     Indication: ANXIETY
     Dosage: TWICE DAILY TAKEN BY MOUTH
     Route: 048
     Dates: start: 20120801, end: 20130908

REACTIONS (4)
  - Insomnia [None]
  - Anxiety [None]
  - Decreased activity [None]
  - Suicidal ideation [None]

NARRATIVE: CASE EVENT DATE: 20120801
